FAERS Safety Report 13639912 (Version 1)
Quarter: 2017Q2

REPORT INFORMATION
  Report Type: Spontaneous
  Country: US (occurrence: US)
  Receive Date: 20170609
  Receipt Date: 20170609
  Transmission Date: 20170830
  Serious: No
  Sender: FDA-Public Use
  Company Number: US-ROCHE-1265035

PATIENT
  Sex: Female

DRUGS (4)
  1. KLONOPIN [Suspect]
     Active Substance: CLONAZEPAM
     Indication: PRODUCT USED FOR UNKNOWN INDICATION
     Dosage: 1/2, 0.5MG TAB QD FOR ONE WEEK
     Route: 065
  2. KLONOPIN [Suspect]
     Active Substance: CLONAZEPAM
     Dosage: 1/4, 0.5MG TAB QD FOR ONE WEEK
     Route: 065
  3. AMBIEN [Concomitant]
     Active Substance: ZOLPIDEM TARTRATE
     Route: 065
     Dates: end: 2013
  4. KLONOPIN [Suspect]
     Active Substance: CLONAZEPAM
     Dosage: 1/4 0.5MG EVERY OTHER DAY FOR ONE WEEK
     Route: 065

REACTIONS (12)
  - Ear pain [Unknown]
  - Dizziness [Unknown]
  - Anxiety [Unknown]
  - Disturbance in attention [Unknown]
  - Back pain [Unknown]
  - Arthralgia [Unknown]
  - Headache [Unknown]
  - West Nile viral infection [Unknown]
  - Eye pain [Unknown]
  - Vision blurred [Unknown]
  - Throat irritation [Unknown]
  - Fatigue [Unknown]
